FAERS Safety Report 19128844 (Version 1)
Quarter: 2021Q2

REPORT INFORMATION
  Report Type: Spontaneous
  Country: US (occurrence: US)
  Receive Date: 20210413
  Receipt Date: 20210413
  Transmission Date: 20210717
  Serious: No
  Sender: FDA-Public Use
  Company Number: US-ALLERGAN-2048872US

PATIENT
  Age: 33 Year
  Sex: Female

DRUGS (2)
  1. LATISSE [Suspect]
     Active Substance: BIMATOPROST
     Indication: GROWTH OF EYELASHES
     Dosage: 2 GTT, QAM
     Dates: start: 20201214, end: 202012
  2. LATISSE [Suspect]
     Active Substance: BIMATOPROST
     Dosage: 2 UNK
     Dates: start: 20201208

REACTIONS (4)
  - Erythema of eyelid [Recovered/Resolved]
  - Eyelid irritation [Recovered/Resolved]
  - Inappropriate schedule of product administration [Unknown]
  - Eyelids pruritus [Recovered/Resolved]

NARRATIVE: CASE EVENT DATE: 202012
